FAERS Safety Report 8213313-2 (Version None)
Quarter: 2012Q1

REPORT INFORMATION
  Report Type: 
  Country: None (occurrence: None)
  Receive Date: 20120315
  Receipt Date: 20120311
  Transmission Date: 20120608
  Serious: Yes (Other)
  Sender: FDA-Public Use
  Company Number: PHHY2012MX022550

PATIENT
  Sex: Female

DRUGS (4)
  1. DIOVAN [Suspect]
     Indication: HYPERTENSION
     Dosage: 160 MG, DAILY
     Dates: start: 20110228
  2. BISOPROLOL FUMARATE [Concomitant]
     Dosage: 1.25 MG, DAILY
  3. DRONEDARONE HCL [Concomitant]
     Dosage: 200 MG, DAILY
  4. ASCRIPTINE [Concomitant]
     Dosage: 325 MG, DAILY

REACTIONS (1)
  - BLOOD THYROID STIMULATING HORMONE DECREASED [None]
